FAERS Safety Report 5280371-7 (Version None)
Quarter: 2007Q1

REPORT INFORMATION
  Report Type: 
  Country: None (occurrence: None)
  Receive Date: 20061229
  Receipt Date: 20060814
  Transmission Date: 20070707
  Serious: Yes (Other)
  Sender: FDA-Public Use
  Company Number: 2006UW16118

PATIENT
  Age: 76 Year
  Sex: Male
  Weight: 77.11 kg

DRUGS (4)
  1. CRESTOR [Suspect]
     Indication: BLOOD CHOLESTEROL INCREASED
     Dosage: 10 MG DAILY PO
     Route: 048
  2. INSULIN [Concomitant]
  3. NORVASC [Concomitant]
  4. COZAAR [Concomitant]

REACTIONS (3)
  - DIZZINESS [None]
  - PAIN IN EXTREMITY [None]
  - VISUAL DISTURBANCE [None]
